FAERS Safety Report 19827938 (Version 1)
Quarter: 2021Q3

REPORT INFORMATION
  Report Type: Spontaneous
  Country: FR (occurrence: FR)
  Receive Date: 20210914
  Receipt Date: 20210914
  Transmission Date: 20211014
  Serious: Yes (Other)
  Sender: FDA-Public Use
  Company Number: FR-ACCORD-238083

PATIENT
  Sex: Male
  Weight: 1.24 kg

DRUGS (9)
  1. FUROSEMIDE. [Suspect]
     Active Substance: FUROSEMIDE
     Indication: PRODUCT USED FOR UNKNOWN INDICATION
     Route: 042
  2. CAFFEINE. [Suspect]
     Active Substance: CAFFEINE
     Indication: PRODUCT USED FOR UNKNOWN INDICATION
     Route: 042
  3. INSULIN [Concomitant]
     Active Substance: INSULIN NOS
  4. DOPAMINE [Concomitant]
     Active Substance: DOPAMINE HYDROCHLORIDE
     Indication: HAEMODYNAMIC INSTABILITY
     Dosage: 2.5 UG/KG/MIN
  5. PIPERACILLIN/TAZOBACTAM [Suspect]
     Active Substance: PIPERACILLIN SODIUM\TAZOBACTAM SODIUM
     Indication: PRODUCT USED FOR UNKNOWN INDICATION
     Route: 042
  6. DINOPROSTONE. [Concomitant]
     Active Substance: DINOPROSTONE
     Indication: EBSTEIN^S ANOMALY
  7. HYDROCORTISONE. [Suspect]
     Active Substance: HYDROCORTISONE
     Indication: PRODUCT USED FOR UNKNOWN INDICATION
     Route: 042
  8. PARACETAMOL [Suspect]
     Active Substance: ACETAMINOPHEN
     Indication: PRODUCT USED FOR UNKNOWN INDICATION
     Route: 042
  9. VANCOMYCIN [Suspect]
     Active Substance: VANCOMYCIN
     Indication: BACTERAEMIA
     Route: 042

REACTIONS (1)
  - Skin necrosis [Unknown]
